FAERS Safety Report 6377324-4 (Version None)
Quarter: 2009Q3

REPORT INFORMATION
  Report Type: 
  Country: None (occurrence: None)
  Receive Date: 20090923
  Receipt Date: 20090923
  Transmission Date: 20100115
  Serious: Yes (Life-Threatening)
  Sender: FDA-Public Use
  Company Number: None

PATIENT
  Age: 75 Year
  Sex: Female
  Weight: 59.4 kg

DRUGS (10)
  1. CLOPIDOGREL [Suspect]
     Indication: CORONARY ARTERY DISEASE
     Dosage: 75MG PO QD
     Route: 048
  2. METOPROLOL SUCCINATE [Concomitant]
  3. DETROL [Concomitant]
  4. GLIPIZIDE [Concomitant]
  5. RANITIDINE [Concomitant]
  6. ZOCOR [Concomitant]
  7. HYDROCHLOROTHIAZIDE [Concomitant]
  8. VIT [Concomitant]
  9. APAP TAB [Concomitant]
  10. METFORMIN [Concomitant]

REACTIONS (1)
  - CEREBRAL HAEMORRHAGE [None]
